FAERS Safety Report 18603617 (Version 1)
Quarter: 2020Q4

REPORT INFORMATION
  Report Type: Spontaneous
  Country: TR (occurrence: TR)
  Receive Date: 20201211
  Receipt Date: 20201211
  Transmission Date: 20210114
  Serious: Yes (Hospitalization, Other)
  Sender: FDA-Public Use
  Company Number: TR-SCIEGEN-2020SCILIT00464

PATIENT
  Age: 4 Year
  Sex: Male

DRUGS (2)
  1. ARIPIPRAZOLE. [Suspect]
     Active Substance: ARIPIPRAZOLE
     Indication: AUTISM SPECTRUM DISORDER
     Route: 065
  2. RISPERIDONE. [Suspect]
     Active Substance: RISPERIDONE
     Indication: AUTISM SPECTRUM DISORDER
     Route: 065

REACTIONS (4)
  - Condition aggravated [Unknown]
  - Tic [Recovering/Resolving]
  - Agitation [Recovering/Resolving]
  - Psychomotor hyperactivity [Recovering/Resolving]
